FAERS Safety Report 4657563-0 (Version None)
Quarter: 2005Q2

REPORT INFORMATION
  Report Type: 
  Country: None (occurrence: None)
  Receive Date: 20050506
  Receipt Date: 20050422
  Transmission Date: 20051028
  Serious: Yes (Hospitalization)
  Sender: FDA-Public Use
  Company Number: HQWYE454829APR05

PATIENT
  Age: 50 Year
  Sex: Male
  Weight: 104.87 kg

DRUGS (3)
  1. RAPAMUNE [Suspect]
     Indication: PROPHYLAXIS AGAINST TRANSPLANT REJECTION
     Dosage: 2 MG 1X PER 1 DAY, ORAL
     Route: 048
     Dates: start: 20050224
  2. MYCOPHENOLATE MOFETIL (MYCOPHENOLATE MOFETIL, ) [Suspect]
     Indication: PROPHYLAXIS AGAINST TRANSPLANT REJECTION
  3. CORTICOSTEROID NOS (CORTICOSTEROID NOS) [Concomitant]

REACTIONS (4)
  - CHILLS [None]
  - PYREXIA [None]
  - URINARY TRACT INFECTION [None]
  - WOUND ABSCESS [None]
